FAERS Safety Report 7535974-3 (Version None)
Quarter: 2011Q2

REPORT INFORMATION
  Report Type: 
  Country: None (occurrence: None)
  Receive Date: 20110602
  Receipt Date: 20110518
  Transmission Date: 20111010
  Serious: Yes (Hospitalization, Other)
  Sender: FDA-Public Use
  Company Number: 2008S1010436

PATIENT
  Age: 63 Year
  Sex: Female
  Weight: 68.9467 kg

DRUGS (9)
  1. ASPIRIN [Concomitant]
  2. CALCIUM CARBONATE [Concomitant]
  3. GLYCOLAX [Concomitant]
  4. ESTROPIPATE [Concomitant]
  5. DILTIAZEM [Concomitant]
  6. PREMARIN [Concomitant]
  7. PHOSPHOSODA FLAVOR NOT SPECIFIED [Suspect]
     Indication: COLONOSCOPY
     Dosage: 90 ML, TOTAL; PO
     Route: 048
     Dates: start: 20080821, end: 20080822
  8. SIMVASTATIN [Concomitant]
  9. METOPROLOL TARTRATE [Concomitant]

REACTIONS (5)
  - HYPOTENSION [None]
  - ACUTE PHOSPHATE NEPHROPATHY [None]
  - NAUSEA [None]
  - RENAL FAILURE ACUTE [None]
  - HEADACHE [None]
